FAERS Safety Report 16163658 (Version 1)
Quarter: 2019Q2

REPORT INFORMATION
  Report Type: Spontaneous
  Country: US (occurrence: US)
  Receive Date: 20190404
  Receipt Date: 20190404
  Transmission Date: 20190711
  Serious: Yes (Other)
  Sender: FDA-Public Use
  Company Number: None

PATIENT
  Age: 62 Year
  Sex: Female

DRUGS (3)
  1. AVASTIN [Concomitant]
     Active Substance: BEVACIZUMAB
     Dates: start: 20190329, end: 20190329
  2. BEVACIZUMAB. [Suspect]
     Active Substance: BEVACIZUMAB
     Indication: PRODUCT USED FOR UNKNOWN INDICATION
     Dosage: EVERY 4 WEEKS PAT RETURNS FOR INJECTION, 2 TIMES MONTHLY
     Route: 031
  3. SYRINGE [Suspect]
     Active Substance: DEVICE
     Dates: start: 2018

REACTIONS (1)
  - Syringe issue [None]

NARRATIVE: CASE EVENT DATE: 20190328
